FAERS Safety Report 17270492 (Version 1)
Quarter: 2020Q1

REPORT INFORMATION
  Report Type: Spontaneous
  Country: US (occurrence: US)
  Receive Date: 20200114
  Receipt Date: 20200114
  Transmission Date: 20200409
  Serious: Yes (Life-Threatening, Other)
  Sender: FDA-Public Use
  Company Number: US-FRESENIUS KABI-FK202000361

PATIENT
  Age: 75 Year
  Sex: Female

DRUGS (8)
  1. MELATONIN [Concomitant]
     Active Substance: MELATONIN
     Indication: PRODUCT USED FOR UNKNOWN INDICATION
     Route: 065
  2. DOCUSATE [Concomitant]
     Active Substance: DOCUSATE
     Indication: PRODUCT USED FOR UNKNOWN INDICATION
     Route: 065
  3. DONEPEZIL. [Suspect]
     Active Substance: DONEPEZIL
     Indication: DEMENTIA ALZHEIMER^S TYPE
     Route: 065
  4. LOSARTAN. [Concomitant]
     Active Substance: LOSARTAN
     Indication: PRODUCT USED FOR UNKNOWN INDICATION
     Route: 065
  5. HALOPERIDOL INJECTION (MANUFACTURER UNKNOWN) [Suspect]
     Active Substance: HALOPERIDOL LACTATE
     Indication: DEMENTIA ALZHEIMER^S TYPE
     Dosage: DAY 1
     Route: 065
  6. ACETYLSALICYLIC ACID [Concomitant]
     Active Substance: ASPIRIN
     Indication: PRODUCT USED FOR UNKNOWN INDICATION
     Route: 065
  7. HALOPERIDOL INJECTION (MANUFACTURER UNKNOWN) [Suspect]
     Active Substance: HALOPERIDOL LACTATE
     Indication: AGGRESSION
     Dosage: DAY 2
     Route: 065
  8. SIMVASTATIN. [Concomitant]
     Active Substance: SIMVASTATIN
     Indication: PRODUCT USED FOR UNKNOWN INDICATION
     Route: 065

REACTIONS (2)
  - Sinus bradycardia [Recovered/Resolved]
  - Hypotension [Recovered/Resolved]
